FAERS Safety Report 21772949 (Version 1)
Quarter: 2022Q4

REPORT INFORMATION
  Report Type: Spontaneous
  Country: US (occurrence: None)
  Receive Date: 20221223
  Receipt Date: 20221223
  Transmission Date: 20230112
  Serious: Yes (Other)
  Sender: FDA-Public Use
  Company Number: None

PATIENT
  Age: 51 Year
  Sex: Female
  Weight: 85.95 kg

DRUGS (2)
  1. EVUSHELD [Suspect]
     Active Substance: CILGAVIMAB\TIXAGEVIMAB
     Indication: Prophylaxis
     Dosage: 600 MG ONCE INTRAMUSCULAR
     Route: 030
     Dates: start: 20221222, end: 20221222
  2. EVUSHELD [Suspect]
     Active Substance: CILGAVIMAB\TIXAGEVIMAB
     Indication: Drug therapy

REACTIONS (3)
  - Somnolence [None]
  - Swollen tongue [None]
  - Blood pressure increased [None]

NARRATIVE: CASE EVENT DATE: 20221222
